FAERS Safety Report 11074142 (Version 2)
Quarter: 2015Q2

REPORT INFORMATION
  Report Type: Spontaneous
  Country: US (occurrence: None)
  Receive Date: 20150427
  Receipt Date: 20150515
  Transmission Date: 20150821
  Serious: Yes (Death, Hospitalization, Other)
  Sender: FDA-Public Use
  Company Number: 1713747-2015-999135

PATIENT
  Age: 69 Year
  Sex: Male

DRUGS (17)
  1. PANTAPRAZOLE SODIUM [Concomitant]
  2. SEVELAMER CARBONATE. [Concomitant]
     Active Substance: SEVELAMER CARBONATE
  3. ACETAMINOPHEN. [Concomitant]
     Active Substance: ACETAMINOPHEN
  4. ASPIRIN. [Concomitant]
     Active Substance: ASPIRIN
  5. METRONIDAZOLE. [Concomitant]
     Active Substance: METRONIDAZOLE
  6. MORPHINE SULFATE. [Concomitant]
     Active Substance: MORPHINE SULFATE
  7. INSULIN [Concomitant]
     Active Substance: INSULIN NOS
  8. LIBERTY CYCLER CASSETTE [Concomitant]
     Active Substance: DEVICE
  9. ONDANSETRON HCL [Concomitant]
     Active Substance: ONDANSETRON HYDROCHLORIDE
  10. BISMUTH SUBSALICYLATE. [Concomitant]
     Active Substance: BISMUTH SUBSALICYLATE
  11. CEFTRIAXONE. [Concomitant]
     Active Substance: CEFTRIAXONE
  12. GLUCAGON. [Concomitant]
     Active Substance: GLUCAGON
  13. DELFLEX [Suspect]
     Active Substance: CALCIUM CHLORIDE\DEXTROSE MONOHYDRATE\MAGNESIUM CHLORIDE\SODIUM CHLORIDE\SODIUM LACTATE
     Indication: PERITONEAL DIALYSIS
     Route: 033
  14. SODIUM CHLORIDE. [Concomitant]
     Active Substance: SODIUM CHLORIDE
  15. NITROGLYCERIN. [Concomitant]
     Active Substance: NITROGLYCERIN
  16. LIBERTY CYCLER [Concomitant]
     Active Substance: DEVICE
  17. GLIPIZIDE. [Concomitant]
     Active Substance: GLIPIZIDE

REACTIONS (5)
  - Atrial fibrillation [None]
  - Hypotension [None]
  - Cardiac arrest [None]
  - Ventricular fibrillation [None]
  - Multi-organ failure [None]

NARRATIVE: CASE EVENT DATE: 20140804
